FAERS Safety Report 4457993-6 (Version None)
Quarter: 2004Q3

REPORT INFORMATION
  Report Type: 
  Country: None (occurrence: None)
  Receive Date: 20040917
  Receipt Date: 20040415
  Transmission Date: 20050211
  Serious: Yes (Other)
  Sender: FDA-Public Use
  Company Number: US-JNJFOC-20040403972

PATIENT
  Age: 40 Year
  Sex: Female
  Weight: 75.7507 kg

DRUGS (2)
  1. TOPAMAX [Suspect]
     Indication: BACK PAIN
     Dosage: 50 MG ; 25 MG  : 1 IN 1 DAY
     Dates: start: 20030901
  2. DURAGESIC [Concomitant]

REACTIONS (2)
  - UNEXPECTED THERAPEUTIC DRUG EFFECT [None]
  - WEIGHT DECREASED [None]
